FAERS Safety Report 7038391-8 (Version None)
Quarter: 2010Q4

REPORT INFORMATION
  Report Type: 
  Country: None (occurrence: None)
  Receive Date: 20101011
  Receipt Date: 20100413
  Transmission Date: 20110411
  Serious: No
  Sender: FDA-Public Use
  Company Number: US-PFIZER INC-2010047198

PATIENT
  Sex: Female
  Weight: 54.422 kg

DRUGS (11)
  1. NEURONTIN [Suspect]
     Indication: NEURITIS
     Dosage: 300 MG, 4X/DAY
     Dates: start: 20070101
  2. MOTRIN [Concomitant]
     Indication: RHEUMATOID ARTHRITIS
     Dosage: 800 MG, 3X/DAY
  3. PERCOCET [Concomitant]
     Indication: PAIN
     Dosage: UNK
  4. PREDNISONE [Concomitant]
     Indication: RHEUMATOID ARTHRITIS
     Dosage: UNK
  5. PARAFON FORTE [Concomitant]
     Indication: PAIN
     Dosage: UNK
  6. NEXIUM [Concomitant]
     Indication: GASTRIC DISORDER
     Dosage: UNK
  7. ZANTAC [Concomitant]
     Dosage: 150 MG, UNK
  8. COZAAR [Concomitant]
     Indication: HYPERTENSION
     Dosage: UNK
  9. TOPROL-XL [Concomitant]
     Dosage: UNK
  10. VISTARIL [Concomitant]
     Dosage: UNK
  11. AMITRIPTYLINE [Concomitant]
     Dosage: UNK

REACTIONS (1)
  - DRUG EFFECT DECREASED [None]
